FAERS Safety Report 21788628 (Version 1)
Quarter: 2022Q4

REPORT INFORMATION
  Report Type: Report from Study
  Country: KR (occurrence: KR)
  Receive Date: 20221228
  Receipt Date: 20221228
  Transmission Date: 20230113
  Serious: Yes (Other)
  Sender: FDA-Public Use
  Company Number: KR-MYLANLABS-2022M1146086

PATIENT
  Age: 64 Year
  Sex: Female

DRUGS (10)
  1. TRASTUZUMAB [Suspect]
     Active Substance: TRASTUZUMAB
     Indication: Neoplasm malignant
     Dosage: 600 MILLIGRAM, QD
     Route: 058
     Dates: start: 20191008, end: 20191213
  2. CARBOPLATIN [Concomitant]
     Active Substance: CARBOPLATIN
     Dosage: 688.32 MILLIGRAM, QD
     Route: 042
     Dates: start: 20191008
  3. CARBOPLATIN [Concomitant]
     Active Substance: CARBOPLATIN
     Dosage: 732.3 MILLIGRAM, QD
     Route: 042
     Dates: start: 20191121, end: 20191121
  4. CARBOPLATIN [Concomitant]
     Active Substance: CARBOPLATIN
     Dosage: 450 MILLIGRAM, QD
     Route: 042
     Dates: start: 20191213, end: 20191213
  5. CARBOPLATIN [Concomitant]
     Active Substance: CARBOPLATIN
     Dosage: 608.88 MILLIGRAM, QD
     Route: 042
     Dates: start: 20191031, end: 20191031
  6. CLEBOPRIDE MALATE;SIMETICONE [Concomitant]
     Dosage: 15 MILLIGRAM, QD
     Route: 048
  7. LANSOPRAZOLE [Concomitant]
     Active Substance: LANSOPRAZOLE
     Dosage: 15 MILLIGRAM, QD
     Route: 048
  8. BENZYDAMINE HYDROCHLORIDE [Concomitant]
     Active Substance: BENZYDAMINE HYDROCHLORIDE
     Dosage: 150 MILLIGRAM
     Route: 065
     Dates: start: 20191008, end: 20191024
  9. BENZYDAMINE HYDROCHLORIDE [Concomitant]
     Active Substance: BENZYDAMINE HYDROCHLORIDE
     Dosage: 100 MILLIGRAM
     Route: 065
     Dates: start: 20191018, end: 20191018
  10. GABAPENTIN [Concomitant]
     Active Substance: GABAPENTIN
     Indication: Mononeuropathy
     Dosage: 100 MILLIGRAM, QD
     Route: 048
     Dates: start: 20191128, end: 20191227

REACTIONS (12)
  - Neutropenia [Recovered/Resolved]
  - Neuropathy peripheral [Recovered/Resolved]
  - Rhinorrhoea [Recovered/Resolved]
  - Myalgia [Recovered/Resolved]
  - Haemorrhoids [Recovered/Resolved]
  - Anaemia [Recovered/Resolved]
  - Insomnia [Recovered/Resolved]
  - Nausea [Recovered/Resolved]
  - Alanine aminotransferase increased [Recovered/Resolved]
  - Aspartate aminotransferase increased [Recovered/Resolved]
  - Decreased appetite [Recovered/Resolved]
  - Off label use [Unknown]

NARRATIVE: CASE EVENT DATE: 20191008
